FAERS Safety Report 7920332-X (Version None)
Quarter: 2011Q4

REPORT INFORMATION
  Report Type: 
  Country: None (occurrence: None)
  Receive Date: 20111117
  Receipt Date: 20111107
  Transmission Date: 20120403
  Serious: Yes (Hospitalization, Other)
  Sender: FDA-Public Use
  Company Number: FR-ELI_LILLY_AND_COMPANY-FR201111001760

PATIENT
  Age: 78 Year
  Sex: Female

DRUGS (11)
  1. TAMSULOSIN HCL [Concomitant]
     Dosage: 0.4 MG, UNK
  2. ZOPICLONE [Concomitant]
  3. ZYPREXA [Suspect]
     Dosage: 5 MG, QD
     Route: 048
  4. ATARAX [Concomitant]
     Dosage: 2.5 DF, QD
     Route: 048
  5. LASIX [Concomitant]
     Dosage: 40 MG, UNK
  6. IMOVANE [Concomitant]
     Dosage: 7.5 MG, UNK
  7. ACETAMINOPHEN [Concomitant]
  8. NICARDIPINE HCL [Concomitant]
     Dosage: 20 MG, UNK
  9. POTASSIUM CHLORIDE [Concomitant]
  10. ASPIRIN [Concomitant]
     Dosage: 160 MG, UNK
  11. LACTULOSE [Concomitant]

REACTIONS (4)
  - FAECALOMA [None]
  - SUBILEUS [None]
  - MENDELSON'S SYNDROME [None]
  - PNEUMONIA ASPIRATION [None]
